FAERS Safety Report 16386172 (Version 4)
Quarter: 2019Q3

REPORT INFORMATION
  Report Type: Spontaneous
  Country: CH (occurrence: CH)
  Receive Date: 20190603
  Receipt Date: 20190910
  Transmission Date: 20191004
  Serious: Yes (Hospitalization, Other)
  Sender: FDA-Public Use
  Company Number: CH-009507513-1905CHE012442

PATIENT
  Age: 58 Year
  Sex: Male

DRUGS (34)
  1. MEROPENEM. [Concomitant]
     Active Substance: MEROPENEM
     Dosage: 6 GRAM, QD
     Route: 041
     Dates: start: 20190404, end: 20190409
  2. LYRICA [Concomitant]
     Active Substance: PREGABALIN
     Dosage: 75 MILLIGRAM, Q12H
     Dates: start: 20190329
  3. MORPHINE [Concomitant]
     Active Substance: MORPHINE
     Dosage: 4 MILLIGRAM, QD
     Route: 041
     Dates: start: 20190423
  4. FENTANYL. [Concomitant]
     Active Substance: FENTANYL
     Dosage: FENTANYL 0.025?0.05 MG 24APR 9:00 A.M., 25APR 12:00 A.M., 29APR 9.00 A.M.; AS NECESSARY
     Route: 041
     Dates: start: 20190424, end: 20190429
  5. CEFEPIME [Concomitant]
     Active Substance: CEFEPIME HYDROCHLORIDE
     Dosage: 2 GRAM, Q12H
     Dates: start: 20190402, end: 20190404
  6. AVIBACTAM SODIUM (+) CEFTAZIDIME [Concomitant]
     Active Substance: AVIBACTAM SODIUM\CEFTAZIDIME
     Dosage: 2.5 GRAM, Q8H
     Route: 041
     Dates: start: 20190409, end: 20190416
  7. FRAGMIN [Concomitant]
     Active Substance: DALTEPARIN SODIUM
     Dosage: 5000 INTERNATIONAL UNITS, QD
     Route: 058
     Dates: start: 20190322, end: 20190331
  8. FRAGMIN [Concomitant]
     Active Substance: DALTEPARIN SODIUM
     Dosage: 12500 INTERNATIONAL UNIT, QD
     Route: 058
     Dates: start: 20190401, end: 20190424
  9. ONDANSETRON HYDROCHLORIDE. [Concomitant]
     Active Substance: ONDANSETRON HYDROCHLORIDE
     Dosage: 1 DOSAGE FORM, PRN; 4 MG
     Dates: start: 20190425
  10. ONDANSETRON HYDROCHLORIDE. [Concomitant]
     Active Substance: ONDANSETRON HYDROCHLORIDE
     Dosage: 1 DOSAGE FORM, PRN; 4 MG
     Dates: start: 20190429
  11. ZERBAXA [Suspect]
     Active Substance: CEFTOLOZANE SULFATE\TAZOBACTAM SODIUM
     Dosage: 3 GRAM, Q8H
     Route: 041
     Dates: start: 20190426, end: 20190426
  12. CEFUROXIME. [Concomitant]
     Active Substance: CEFUROXIME
     Dosage: 1 DOSAGE FORM, Q8H
     Dates: start: 20190321, end: 20190323
  13. TOBRAMYCIN. [Concomitant]
     Active Substance: TOBRAMYCIN
     Dosage: 300 MILLIGRAM, Q12H
     Route: 055
     Dates: start: 20190416
  14. ONDANSETRON HYDROCHLORIDE. [Concomitant]
     Active Substance: ONDANSETRON HYDROCHLORIDE
     Dosage: 1 DOSAGE FORM, PRN; 4 MG
     Dates: start: 20190322
  15. PROPOFOL. [Concomitant]
     Active Substance: PROPOFOL
     Dosage: PROPOFOL 1% (10 MG/ML) 24APR 9:00 A.M., 25APR 12:00 A.M., 29APR 9:00 A.M.; AS NECESSARY
     Route: 041
     Dates: start: 20190424, end: 20190429
  16. CIPROXIN (CIPROFLOXACIN) [Concomitant]
     Active Substance: CIPROFLOXACIN
     Dosage: 1 DOSAGE FORM, Q8H
     Route: 041
     Dates: start: 20190502
  17. REMERON [Concomitant]
     Active Substance: MIRTAZAPINE
     Dosage: UNK
  18. CIPROXIN (CIPROFLOXACIN) [Concomitant]
     Active Substance: CIPROFLOXACIN
     Indication: PNEUMONIA PSEUDOMONAL
     Dosage: 400 MILLIGRAM, Q8H
     Route: 041
     Dates: start: 20190405, end: 20190425
  19. PIPERACILLIN AND TAZOBACTAM [Concomitant]
     Active Substance: PIPERACILLIN SODIUM\TAZOBACTAM SODIUM
     Dosage: (4.5)
     Route: 041
     Dates: start: 20190324, end: 20190329
  20. ESCITALOPRAM [Concomitant]
     Active Substance: ESCITALOPRAM OXALATE
     Dosage: 10 MILLIGRAM, QD
     Dates: start: 20190327
  21. ZERBAXA [Suspect]
     Active Substance: CEFTOLOZANE SULFATE\TAZOBACTAM SODIUM
     Dosage: 01-MAY-2019 1 DOSE (9.00 A.M.); IN TOTAL
     Route: 041
     Dates: start: 20190501, end: 20190501
  22. CIPROXIN (CIPROFLOXACIN) [Concomitant]
     Active Substance: CIPROFLOXACIN
     Dosage: 750 MILLIGRAM, Q8H
     Route: 048
     Dates: start: 20190429, end: 20190429
  23. ONDANSETRON HYDROCHLORIDE. [Concomitant]
     Active Substance: ONDANSETRON HYDROCHLORIDE
     Dosage: 1 DOSAGE FORM, PRN; 4 MG; 3 TIMES
     Dates: start: 20190501
  24. ZERBAXA [Suspect]
     Active Substance: CEFTOLOZANE SULFATE\TAZOBACTAM SODIUM
     Indication: PNEUMONIA PSEUDOMONAL
     Dosage: 3 GRAM, Q8H
     Route: 041
     Dates: start: 20190409, end: 20190424
  25. ZERBAXA [Suspect]
     Active Substance: CEFTOLOZANE SULFATE\TAZOBACTAM SODIUM
     Dosage: 3 GRAM, Q8H
     Route: 041
     Dates: start: 20190429, end: 20190429
  26. MST CONTINUS [Concomitant]
     Active Substance: MORPHINE SULFATE
     Dosage: 60 MILLIGRAM, Q12H
     Dates: start: 20190326
  27. ONDANSETRON HYDROCHLORIDE. [Concomitant]
     Active Substance: ONDANSETRON HYDROCHLORIDE
     Dosage: 1 DOSAGE FORM, PRN; 4 MG
     Dates: start: 20190323
  28. CIPROXIN (CIPROFLOXACIN) [Concomitant]
     Active Substance: CIPROFLOXACIN
     Dosage: 400 MILLIGRAM, Q8H
     Route: 041
     Dates: start: 20190426, end: 20190426
  29. ERYTHROCIN [Concomitant]
     Active Substance: ERYTHROMYCIN LACTOBIONATE
     Dosage: 1 DOSAGE FORM, Q8H
     Route: 041
     Dates: start: 20190323, end: 20190325
  30. MEROPENEM. [Concomitant]
     Active Substance: MEROPENEM
     Dosage: 3 GRAM, QD
     Route: 041
     Dates: start: 20190329, end: 20190402
  31. QUETIAPINE FUMARATE. [Concomitant]
     Active Substance: QUETIAPINE FUMARATE
     Dosage: 15 MILLIGRAM, QD
     Dates: start: 20190327
  32. CIRCADIN [Concomitant]
     Active Substance: MELATONIN
     Dosage: 2 MILLIGRAM, QD
     Dates: start: 20190402
  33. ONDANSETRON HYDROCHLORIDE. [Concomitant]
     Active Substance: ONDANSETRON HYDROCHLORIDE
     Dosage: 1 DOSAGE FORM, PRN; 4 MG
     Dates: start: 20190430
  34. LASIX [Concomitant]
     Active Substance: FUROSEMIDE
     Dosage: IN TOTAL
     Dates: start: 20190423, end: 20190423

REACTIONS (2)
  - Thrombocytopenia [Recovered/Resolved]
  - Off label use [Recovered/Resolved]

NARRATIVE: CASE EVENT DATE: 20190409
